FAERS Safety Report 16899708 (Version 1)
Quarter: 2019Q4

REPORT INFORMATION
  Report Type: Spontaneous
  Country: US (occurrence: US)
  Receive Date: 20190815
  Receipt Date: 20190815
  Transmission Date: 20200122
  Serious: Yes (Hospitalization)
  Sender: FDA-Public Use
  Company Number: None

PATIENT
  Age: 61 Year
  Sex: Female
  Weight: 69.8 kg

DRUGS (10)
  1. NORETHINDRONE-ETHINYL ESTRADIOL (JINTELI) [Concomitant]
  2. NEXIUM [Concomitant]
     Active Substance: ESOMEPRAZOLE MAGNESIUM
  3. CYANOCOBALAMIN (VITAMIN B12) [Concomitant]
  4. AMLODIPINE [Concomitant]
     Active Substance: AMLODIPINE BESYLATE
  5. CALCIUM-VITAMIN D (OSCAL-500) [Concomitant]
  6. HYDROCODONE-ACETAMINOPHEN (NORCO) [Concomitant]
  7. HUMIRA [Suspect]
     Active Substance: ADALIMUMAB
  8. HYDROCHLOROTHIAZIDE (HYDRODIURIL) [Concomitant]
  9. BUDESONIDE (ENTOCORT EC) [Concomitant]
  10. AZATHIOPRINE (IMURAN) [Concomitant]

REACTIONS (11)
  - Asthenia [None]
  - Blood creatine increased [None]
  - Fall [None]
  - Rhabdomyolysis [None]
  - Hypophosphataemia [None]
  - Blood creatine phosphokinase increased [None]
  - Diarrhoea [None]
  - Musculoskeletal disorder [None]
  - Hypokalaemia [None]
  - Myalgia [None]
  - Hypomagnesaemia [None]

NARRATIVE: CASE EVENT DATE: 20190616
